FAERS Safety Report 9215146 (Version 2)
Quarter: 2013Q2

REPORT INFORMATION
  Report Type: Spontaneous
  Country: US (occurrence: US)
  Receive Date: 20130405
  Receipt Date: 20130422
  Transmission Date: 20140414
  Serious: Yes (Hospitalization, Disabling, Other)
  Sender: FDA-Public Use
  Company Number: US-009507513-1203USA02850

PATIENT
  Sex: Female
  Weight: 50.79 kg

DRUGS (2)
  1. FOSAMAX [Suspect]
     Indication: OSTEOPENIA
     Dosage: 10 MG, UNK
     Route: 048
     Dates: start: 199712, end: 2000
  2. FOSAMAX [Suspect]
     Indication: OSTEOPOROSIS
     Dosage: 70 MG, UNK
     Dates: start: 2000

REACTIONS (29)
  - Bone debridement [Unknown]
  - Deafness [Unknown]
  - Deafness neurosensory [Unknown]
  - Osteonecrosis of jaw [Not Recovered/Not Resolved]
  - Dental caries [Unknown]
  - Dental caries [Unknown]
  - Dental caries [Unknown]
  - Dental caries [Unknown]
  - Dental caries [Unknown]
  - Dental caries [Unknown]
  - Dental caries [Unknown]
  - Dental caries [Unknown]
  - Dental caries [Unknown]
  - Periodontal disease [Unknown]
  - Adverse event [Unknown]
  - Adverse event [Unknown]
  - Essential hypertension [Unknown]
  - Blood cholesterol increased [Unknown]
  - Pain in jaw [Unknown]
  - Empyema drainage [Unknown]
  - Fatigue [Recovered/Resolved]
  - Abnormal loss of weight [Recovered/Resolved]
  - Anaemia of chronic disease [Not Recovered/Not Resolved]
  - Stent placement [Unknown]
  - Coronary artery disease [Unknown]
  - Dental prosthesis user [Unknown]
  - Gram stain positive [Unknown]
  - Jaw fracture [Unknown]
  - Osteomyelitis [Unknown]
